FAERS Safety Report 4350458-1 (Version None)
Quarter: 2004Q2

REPORT INFORMATION
  Report Type: 
  Country: None (occurrence: None)
  Receive Date: 20040427
  Receipt Date: 20040414
  Transmission Date: 20050107
  Serious: Yes (Hospitalization)
  Sender: FDA-Public Use
  Company Number: 2004209004US

PATIENT
  Age: 56 Year
  Sex: Female

DRUGS (26)
  1. ELLENCE [Suspect]
     Indication: BREAST CANCER FEMALE
     Dosage: 200 MG, CYCLIC, DA 1, IV
     Route: 042
     Dates: start: 20040114
  2. CYCLOPHOSPHAMIDE [Suspect]
     Indication: BREAST CANCER FEMALE
     Dosage: 1000 MG, CYCLIC, DAY 1, IV
     Route: 042
     Dates: start: 20040114
  3. FLUOROURACIL [Suspect]
     Indication: BREAST CANCER FEMALE
     Dosage: 1000 MG, CYCLIC, DAY 1, IV
     Route: 042
     Dates: start: 20040114
  4. TAXOL [Suspect]
     Indication: BREAST CANCER FEMALE
     Dosage: 80 MG/M2, CYCLIC
     Dates: start: 20031115, end: 20031220
  5. LEVAQUIN [Concomitant]
  6. PROPOXYPHENE HCL [Concomitant]
  7. ZOFRAN [Concomitant]
  8. K-DUR 10 [Concomitant]
  9. PLAQUENIL [Concomitant]
  10. FOLIC ACID [Concomitant]
  11. PRILOSEC [Concomitant]
  12. DIOVAN [Concomitant]
  13. METHOTREXATE [Concomitant]
  14. PREDNISOLONE [Concomitant]
  15. SULINDAC [Concomitant]
  16. IMDUR [Concomitant]
  17. DEMADEX [Concomitant]
  18. SYNTHROID [Concomitant]
  19. VITAMINE E [Concomitant]
  20. CENTRUM (VITAMINS NOS) [Concomitant]
  21. CALTRATE [Concomitant]
  22. ESTER-C (CALCIUM ASCORBATE) [Concomitant]
  23. THIAMINE HCL [Concomitant]
  24. VITAMIN B6 [Concomitant]
  25. SONATA [Concomitant]
  26. AFRIN (AMINOACETIC ACID, PHENYLMERCURIC ACETATE, OXYMETAZOLINE HYDROCH [Concomitant]

REACTIONS (14)
  - ABDOMINAL PAIN [None]
  - BLOOD ALBUMIN DECREASED [None]
  - BLOOD CALCIUM DECREASED [None]
  - BLOOD CREATININE INCREASED [None]
  - DIARRHOEA [None]
  - FEBRILE NEUTROPENIA [None]
  - HAEMATOCRIT DECREASED [None]
  - HAEMOGLOBIN DECREASED [None]
  - HEART RATE INCREASED [None]
  - HYPOTENSION [None]
  - OXYGEN SATURATION DECREASED [None]
  - PLATELET COUNT DECREASED [None]
  - PROTHROMBIN TIME PROLONGED [None]
  - WHITE BLOOD CELL COUNT DECREASED [None]
